FAERS Safety Report 17057698 (Version 2)
Quarter: 2020Q1

REPORT INFORMATION
  Report Type: Spontaneous
  Country: US (occurrence: US)
  Receive Date: 20191121
  Receipt Date: 20200326
  Transmission Date: 20200409
  Serious: Yes (Other)
  Sender: FDA-Public Use
  Company Number: US-JNJFOC-20191117571

PATIENT
  Sex: Male

DRUGS (18)
  1. LUPRON [Concomitant]
     Active Substance: LEUPROLIDE ACETATE
     Route: 065
  2. OMEPRAZOLE. [Concomitant]
     Active Substance: OMEPRAZOLE
     Route: 065
     Dates: start: 2012
  3. METOPROLOL SUCCINATE. [Concomitant]
     Active Substance: METOPROLOL SUCCINATE
     Route: 065
  4. FUROSEMIDE. [Concomitant]
     Active Substance: FUROSEMIDE
     Route: 065
     Dates: start: 1998
  5. VENLAFAXINE [Concomitant]
     Active Substance: VENLAFAXINE HYDROCHLORIDE
     Route: 065
     Dates: start: 201909
  6. GABAPENTIN. [Concomitant]
     Active Substance: GABAPENTIN
     Dosage: 600 MG X 3 TABLETS
     Route: 065
     Dates: start: 201909
  7. ZOMETA [Concomitant]
     Active Substance: ZOLEDRONIC ACID
     Route: 065
  8. LIPITOR [Concomitant]
     Active Substance: ATORVASTATIN CALCIUM
     Route: 065
     Dates: start: 1998
  9. DOCUSATE SODIUM. [Concomitant]
     Active Substance: DOCUSATE SODIUM
     Dosage: 100 MG X 2 TABLETS
     Route: 065
     Dates: start: 201906
  10. SULINDAC. [Concomitant]
     Active Substance: SULINDAC
     Route: 065
     Dates: start: 2009
  11. SENNA                              /00142201/ [Concomitant]
     Active Substance: SENNA LEAF
     Route: 065
     Dates: start: 201906
  12. ACETYLSALICYLIC ACID [Concomitant]
     Active Substance: ASPIRIN
     Route: 065
     Dates: start: 2008
  13. VITAMIN D3 CALCIUM [Concomitant]
     Active Substance: CALCIUM\CHOLECALCIFEROL
     Dosage: 20 MG / 600 MG
     Route: 065
     Dates: start: 2019
  14. ZYTIGA [Suspect]
     Active Substance: ABIRATERONE ACETATE
     Indication: PRODUCT USED FOR UNKNOWN INDICATION
     Dosage: 250 MG X 4 TABLETS
     Route: 048
     Dates: start: 201908
  15. LISINOPRIL. [Concomitant]
     Active Substance: LISINOPRIL
     Route: 065
     Dates: start: 1998
  16. XTAMPZA ER [Concomitant]
     Active Substance: OXYCODONE
     Dosage: 2 TABLETS
     Route: 065
     Dates: start: 201906
  17. HYDROCODONE/ACETAMINOPHEN [Concomitant]
     Active Substance: ACETAMINOPHEN\HYDROCODONE
     Route: 065
     Dates: start: 201906
  18. GABAPENTIN. [Concomitant]
     Active Substance: GABAPENTIN
     Dosage: 300 MG X 3 TABLETS
     Route: 065
     Dates: start: 201906, end: 201909

REACTIONS (3)
  - Blood glucose increased [Recovering/Resolving]
  - Weight increased [Unknown]
  - Fluid retention [Unknown]
